FAERS Safety Report 12640304 (Version 1)
Quarter: 2016Q3

REPORT INFORMATION
  Report Type: Spontaneous
  Country: CA (occurrence: CA)
  Receive Date: 20160810
  Receipt Date: 20160810
  Transmission Date: 20161109
  Serious: Yes (Hospitalization)
  Sender: FDA-Public Use
  Company Number: CA-SA-2016SA143187

PATIENT
  Age: 81 Year
  Sex: Female
  Weight: 91 kg

DRUGS (9)
  1. ENOXAPARIN [Concomitant]
     Active Substance: ENOXAPARIN
  2. RIFAMPIN. [Suspect]
     Active Substance: RIFAMPIN
     Indication: INFECTION
     Route: 048
  3. TRAZODONE [Concomitant]
     Active Substance: TRAZODONE HYDROCHLORIDE
  4. PRADAXA [Suspect]
     Active Substance: DABIGATRAN ETEXILATE MESYLATE
     Indication: ATRIAL FIBRILLATION
     Route: 048
  5. GALANTAMINE. [Concomitant]
     Active Substance: GALANTAMINE
  6. MAGNESIUM OXIDE. [Concomitant]
     Active Substance: MAGNESIUM OXIDE
  7. RISPERIDONE. [Concomitant]
     Active Substance: RISPERIDONE
  8. ATENOLOL. [Concomitant]
     Active Substance: ATENOLOL
  9. CITALOPRAM [Concomitant]
     Active Substance: CITALOPRAM HYDROBROMIDE

REACTIONS (6)
  - Infarction [Unknown]
  - Pain in extremity [Unknown]
  - Facial paralysis [Unknown]
  - Pyrexia [Unknown]
  - Dysphagia [Unknown]
  - Cerebrovascular accident [Unknown]
